FAERS Safety Report 22314341 (Version 3)
Quarter: 2023Q2

REPORT INFORMATION
  Report Type: Report from Study
  Country: US (occurrence: US)
  Receive Date: 20230512
  Receipt Date: 20230519
  Transmission Date: 20230721
  Serious: Yes (Other)
  Sender: FDA-Public Use
  Company Number: US-ABBVIE-4764065

PATIENT
  Age: 47 Year
  Sex: Female

DRUGS (3)
  1. SKYRIZI [Suspect]
     Active Substance: RISANKIZUMAB-RZAA
     Indication: Psoriasis
     Route: 058
     Dates: start: 20230508
  2. SKYRIZI [Suspect]
     Active Substance: RISANKIZUMAB-RZAA
     Indication: Psoriatic arthropathy
     Route: 058
     Dates: start: 20230410, end: 20230508
  3. CORTISONE [Suspect]
     Active Substance: CORTISONE
     Indication: Tendonitis
     Route: 065

REACTIONS (6)
  - Surgery [Not Recovered/Not Resolved]
  - Chest discomfort [Recovered/Resolved]
  - Hypersensitivity [Not Recovered/Not Resolved]
  - Tendonitis [Not Recovered/Not Resolved]
  - Erythema [Recovered/Resolved]
  - Feeling hot [Recovered/Resolved]

NARRATIVE: CASE EVENT DATE: 20230509
